FAERS Safety Report 7626781 (Version 5)
Quarter: 2014Q1

REPORT INFORMATION
  Report Type: Spontaneous
  Country: US (occurrence: US)
  Receive Date: 20101013
  Receipt Date: 20140225
  Transmission Date: 20141002
  Serious: Yes (Other)
  Sender: FDA-Public Use
  Company Number: US-ASTRAZENECA-2010SE34830

PATIENT
  Age: 76 Year
  Sex: Female
  Weight: 61.2 kg

DRUGS (9)
  1. SYMBICORT [Suspect]
     Indication: ASTHMA
     Dosage: 160/4.5, TWO INHALATIONS BID
     Route: 055
     Dates: start: 2006, end: 201402
  2. SYMBICORT [Suspect]
     Indication: CHRONIC OBSTRUCTIVE PULMONARY DISEASE
     Dosage: 160/4.5, TWO INHALATIONS BID
     Route: 055
     Dates: start: 2006, end: 201402
  3. SYMBICORT [Suspect]
     Indication: EMPHYSEMA
     Dosage: 160/4.5, TWO INHALATIONS BID
     Route: 055
     Dates: start: 2006, end: 201402
  4. RHINOCORT AQUA [Suspect]
     Indication: MULTIPLE ALLERGIES
     Dosage: 2 SPRAYS EACH NOSTRIL DAILY
     Route: 045
  5. NEXIUM [Suspect]
     Indication: GASTRIC DISORDER
     Route: 048
     Dates: start: 2002
  6. SPIRIVA [Concomitant]
     Indication: CHRONIC OBSTRUCTIVE PULMONARY DISEASE
     Route: 055
     Dates: start: 2006
  7. SPIRIVA [Concomitant]
     Indication: EMPHYSEMA
     Route: 055
     Dates: start: 2006
  8. ALLEGRA [Concomitant]
  9. SINGULAIR [Concomitant]

REACTIONS (13)
  - Loss of consciousness [Unknown]
  - Coccidioidomycosis [Recovering/Resolving]
  - Aspergillus infection [Unknown]
  - Gastrooesophageal reflux disease [Unknown]
  - Chronic obstructive pulmonary disease [Unknown]
  - Weight increased [Unknown]
  - Malaise [Unknown]
  - Nausea [Unknown]
  - Diarrhoea [Unknown]
  - Influenza [Recovered/Resolved]
  - Body height decreased [Not Recovered/Not Resolved]
  - Drug dose omission [Not Recovered/Not Resolved]
  - Off label use [Unknown]
